FAERS Safety Report 11876132 (Version 1)
Quarter: 2015Q4

REPORT INFORMATION
  Report Type: Spontaneous
  Country: US (occurrence: US)
  Receive Date: 20151229
  Receipt Date: 20151229
  Transmission Date: 20160305
  Serious: Yes (Other)
  Sender: FDA-Public Use
  Company Number: US-BAYER-2015-494586

PATIENT
  Age: 32 Year
  Sex: Female

DRUGS (1)
  1. GADAVIST [Suspect]
     Active Substance: GADOBUTROL
     Indication: BACK PAIN
     Dosage: 11.5 ML, ONCE
     Route: 042
     Dates: start: 20151222

REACTIONS (2)
  - Chest pain [None]
  - Sensation of foreign body [None]

NARRATIVE: CASE EVENT DATE: 20151222
